FAERS Safety Report 22013694 (Version 3)
Quarter: 2023Q2

REPORT INFORMATION
  Report Type: Report from Study
  Country: US (occurrence: US)
  Receive Date: 20230221
  Receipt Date: 20230509
  Transmission Date: 20230721
  Serious: Yes (Other)
  Sender: FDA-Public Use
  Company Number: US-GILEAD-2023-0616670

PATIENT
  Age: 41 Year
  Sex: Female

DRUGS (19)
  1. AZTREONAM LYSINE [Suspect]
     Active Substance: AZTREONAM LYSINE
     Indication: Cystic fibrosis
     Dosage: 1 ML (75 MG) VIA ALTERA NEBULIZER. THREE TIMES DAILY ALTERNATING 28 DAYS ON AND 28 DAYS OFF.
     Route: 055
  2. TYVASO [Suspect]
     Active Substance: TREPROSTINIL
     Indication: Product used for unknown indication
     Dosage: UNK
     Route: 065
  3. KALYDECO [Concomitant]
     Active Substance: IVACAFTOR
  4. SILDENAFIL CITRATE [Concomitant]
     Active Substance: SILDENAFIL CITRATE
  5. LORATADINE [Concomitant]
     Active Substance: LORATADINE
  6. OXYGEN [Concomitant]
     Active Substance: OXYGEN
  7. TRELEGY ELLIPTA [Concomitant]
     Active Substance: FLUTICASONE FUROATE\UMECLIDINIUM BROMIDE\VILANTEROL TRIFENATATE
  8. ALBUTEROL SULFATE [Concomitant]
     Active Substance: ALBUTEROL SULFATE
  9. AZITHROMYCIN [Concomitant]
     Active Substance: AZITHROMYCIN
  10. VITAMIN C [Concomitant]
     Active Substance: ASCORBIC ACID
  11. RETINOL [Concomitant]
     Active Substance: RETINOL
  12. MONTELUKAST SODIUM [Concomitant]
     Active Substance: MONTELUKAST SODIUM
  13. SODIUM CHLORIDE [Concomitant]
     Active Substance: SODIUM CHLORIDE
  14. CINNAMON [CINNAMOMUM CASSIA BARK] [Concomitant]
  15. PULMOZYME [Concomitant]
     Active Substance: DORNASE ALFA
  16. HERBALS\TURMERIC [Concomitant]
     Active Substance: HERBALS\TURMERIC
  17. MOMETASONE FUROATE [Concomitant]
     Active Substance: MOMETASONE FUROATE
  18. VITAMIN D3 [Concomitant]
     Active Substance: CHOLECALCIFEROL
  19. VITAMIN E [Concomitant]
     Active Substance: .ALPHA.-TOCOPHEROL

REACTIONS (5)
  - Respiratory tract irritation [Unknown]
  - Headache [Recovering/Resolving]
  - Hypersensitivity [Unknown]
  - Chest discomfort [Unknown]
  - Dyspnoea [Unknown]
